FAERS Safety Report 14517667 (Version 1)
Quarter: 2018Q1

REPORT INFORMATION
  Report Type: Spontaneous
  Country: US (occurrence: US)
  Receive Date: 20180212
  Receipt Date: 20180212
  Transmission Date: 20180509
  Serious: No
  Sender: FDA-Public Use
  Company Number: US-PFIZER INC-2018056526

PATIENT
  Sex: Female

DRUGS (1)
  1. ADVIL PM [Suspect]
     Active Substance: DIPHENHYDRAMINE CITRATE\IBUPROFEN
     Dosage: 4 DF, 1X/DAY (TOOK 4 ADVIL PM AT ONCE)
     Dates: start: 20180206

REACTIONS (2)
  - Overdose [Unknown]
  - Abdominal pain upper [Unknown]
